FAERS Safety Report 21761748 (Version 2)
Quarter: 2023Q1

REPORT INFORMATION
  Report Type: Report from Study
  Country: US (occurrence: US)
  Receive Date: 20221221
  Receipt Date: 20230112
  Transmission Date: 20230418
  Serious: No
  Sender: FDA-Public Use
  Company Number: US-SA-SAC20221219000468

PATIENT
  Age: 83 Year
  Sex: Female

DRUGS (2)
  1. DUPILUMAB [Suspect]
     Active Substance: DUPILUMAB
     Indication: Dermatitis atopic
     Dosage: 600 MG, 1X
     Route: 058
  2. DUPILUMAB [Suspect]
     Active Substance: DUPILUMAB
     Dosage: 300 MG, QOW
     Route: 058
     Dates: start: 202210, end: 2022

REACTIONS (6)
  - Alopecia [Unknown]
  - Fatigue [Unknown]
  - Dyspnoea [Unknown]
  - White blood cell count increased [Unknown]
  - Swelling face [Unknown]
  - Therapeutic response shortened [Unknown]
